FAERS Safety Report 6550322-3 (Version None)
Quarter: 2010Q1

REPORT INFORMATION
  Report Type: 
  Country: None (occurrence: None)
  Receive Date: 20100119
  Receipt Date: 20100105
  Transmission Date: 20100710
  Serious: Yes (Other)
  Sender: FDA-Public Use
  Company Number: AE-2009-359

PATIENT
  Age: 2 Month
  Sex: Male

DRUGS (2)
  1. HYDROCHLOROTHIAZIDE [Suspect]
     Dosage: 2MG/KG, TWICE DAILY, ORAL
     Route: 048
  2. HYDROCHLOROTHIAZIDE [Suspect]
     Dosage: 1 MG/KG, TWICE DAILY, ORAL
     Route: 048

REACTIONS (10)
  - BRAIN OEDEMA [None]
  - DYSPNOEA [None]
  - HYPERHIDROSIS [None]
  - HYPERNATRAEMIA [None]
  - HYPOKALAEMIA [None]
  - HYPOTHERMIA [None]
  - PALLOR [None]
  - POLYDIPSIA [None]
  - POLYURIA [None]
  - WATER INTOXICATION [None]
